FAERS Safety Report 13824711 (Version 1)
Quarter: 2017Q3

REPORT INFORMATION
  Report Type: Spontaneous
  Country: US (occurrence: US)
  Receive Date: 20170802
  Receipt Date: 20170802
  Transmission Date: 20171127
  Serious: No
  Sender: FDA-Public Use
  Company Number: None

PATIENT
  Age: 26 Year
  Sex: Female

DRUGS (1)
  1. HAWAIIAN TROPIC [Suspect]
     Active Substance: AVOBENZONE\HOMOSALATE\LIDOCAINE\OCTOCRYLENE\OXYBENZONE

REACTIONS (1)
  - Application site burn [None]

NARRATIVE: CASE EVENT DATE: 20170702
